FAERS Safety Report 13994935 (Version 1)
Quarter: 2017Q3

REPORT INFORMATION
  Report Type: Spontaneous
  Country: US (occurrence: US)
  Receive Date: 20170921
  Receipt Date: 20170921
  Transmission Date: 20171128
  Serious: No
  Sender: FDA-Public Use
  Company Number: None

PATIENT
  Sex: Female
  Weight: 51.75 kg

DRUGS (9)
  1. ZOFRAN [Concomitant]
     Active Substance: ONDANSETRON HYDROCHLORIDE
  2. IRON [Concomitant]
     Active Substance: IRON
  3. DEPO-PROVERA [Suspect]
     Active Substance: MEDROXYPROGESTERONE ACETATE
     Indication: ENDOMETRIOSIS
     Dosage: QUANTITY:1 INJECTION(S);OTHER FREQUENCY:EVERY 3 MONTHS;?
     Route: 030
     Dates: start: 20170727
  4. VITAMIN B12 [Concomitant]
     Active Substance: CYANOCOBALAMIN
  5. BIOTEIN [Concomitant]
  6. POTASSIUM [Concomitant]
     Active Substance: POTASSIUM
  7. TOPAMAX [Concomitant]
     Active Substance: TOPIRAMATE
  8. XANAX [Concomitant]
     Active Substance: ALPRAZOLAM
  9. PROZAC [Concomitant]
     Active Substance: FLUOXETINE HYDROCHLORIDE

REACTIONS (19)
  - Weight increased [None]
  - Asthenia [None]
  - Injection site pain [None]
  - Hot flush [None]
  - Hyperhidrosis [None]
  - Fatigue [None]
  - Alopecia [None]
  - Depressed mood [None]
  - Constipation [None]
  - Insomnia [None]
  - Decreased interest [None]
  - Major depression [None]
  - Rash pruritic [None]
  - Dyspnoea [None]
  - Personality change [None]
  - Paraesthesia [None]
  - Anxiety [None]
  - Migraine [None]
  - Pain [None]

NARRATIVE: CASE EVENT DATE: 20170904
